FAERS Safety Report 5739129-4 (Version None)
Quarter: 2008Q2

REPORT INFORMATION
  Report Type: 
  Country: None (occurrence: None)
  Receive Date: 20080515
  Receipt Date: 20080509
  Transmission Date: 20081010
  Serious: Yes (Hospitalization)
  Sender: FDA-Public Use
  Company Number: A0724539A

PATIENT

DRUGS (7)
  1. CARVEDILOL [Suspect]
     Dosage: 12.5MG TWICE PER DAY
     Route: 048
     Dates: start: 20080207, end: 20080316
  2. LIPITOR [Concomitant]
  3. LOTENSIN [Concomitant]
  4. LASIX [Concomitant]
  5. K-DUR [Concomitant]
  6. ATIVAN [Concomitant]
  7. NORTRIPTYLINE HCL [Concomitant]

REACTIONS (3)
  - CONFUSIONAL STATE [None]
  - POOR QUALITY SLEEP [None]
  - PSYCHOTIC DISORDER [None]
